FAERS Safety Report 9580338 (Version 4)
Quarter: 2013Q4

REPORT INFORMATION
  Report Type: Report from Study
  Country: None (occurrence: DE)
  Receive Date: 20131002
  Receipt Date: 20131209
  Transmission Date: 20140711
  Serious: Yes (Other)
  Sender: FDA-Public Use
  Company Number: DE-FRI-1000049339

PATIENT
  Age: 62 Year
  Sex: Female
  Weight: 64 kg

DRUGS (6)
  1. ACLIDINIUM [Suspect]
     Dosage: 2 DOSAGE FORMS
     Dates: start: 20130816, end: 20130919
  2. SEROQUEL [Concomitant]
     Indication: MAJOR DEPRESSION
     Dosage: 4 DOSAGE FORMS
     Dates: start: 2007
  3. TREVILOR [Concomitant]
     Indication: MAJOR DEPRESSION
     Dosage: 1 DOSAGE FORM
     Dates: start: 2007
  4. FORMOLICH [Concomitant]
     Indication: CHRONIC OBSTRUCTIVE PULMONARY DISEASE
     Dosage: 2 DOSAGE FORMS
     Route: 055
     Dates: start: 20091124
  5. MIFLONIDE [Concomitant]
     Indication: CHRONIC OBSTRUCTIVE PULMONARY DISEASE
     Dosage: 400 MCG
     Route: 055
     Dates: start: 20110617
  6. BERODUAL [Concomitant]
     Indication: CHRONIC OBSTRUCTIVE PULMONARY DISEASE
     Dosage: 3 DOSAGE FORMS
     Dates: start: 20091124

REACTIONS (1)
  - Polyneuropathy [Recovering/Resolving]
